FAERS Safety Report 9400812 (Version 1)
Quarter: 2013Q3

REPORT INFORMATION
  Report Type: Spontaneous
  Country: US (occurrence: US)
  Receive Date: 20130715
  Receipt Date: 20130715
  Transmission Date: 20140515
  Serious: Yes (Hospitalization, Other)
  Sender: FDA-Public Use
  Company Number: US-ACTAVIS-2013-11950

PATIENT
  Age: 68 Year
  Sex: Female

DRUGS (6)
  1. OXALIPLATIN (ATLLC) [Suspect]
     Indication: METASTASES TO LUNG
     Dosage: UNK
     Route: 042
  2. OXALIPLATIN (ATLLC) [Suspect]
     Indication: METASTASES TO LIVER
  3. FLUOROURACIL [Concomitant]
     Indication: METASTASES TO LUNG
     Dosage: UNK
     Route: 065
  4. FLUOROURACIL [Concomitant]
     Indication: METASTASES TO LIVER
  5. LEUCOVORIN                         /00566701/ [Concomitant]
     Indication: METASTASES TO LUNG
     Dosage: UNK
     Route: 065
  6. LEUCOVORIN                         /00566701/ [Concomitant]
     Indication: METASTASES TO LIVER

REACTIONS (17)
  - Thrombotic thrombocytopenic purpura [Recovering/Resolving]
  - Metastases to lung [None]
  - Metastases to liver [None]
  - Malignant neoplasm progression [None]
  - Chest pain [None]
  - Infusion related reaction [None]
  - Blood pressure systolic increased [None]
  - Heart rate increased [None]
  - Respiratory rate increased [None]
  - Confusional state [None]
  - Stoma site haemorrhage [None]
  - Jaundice [None]
  - Anaemia [None]
  - Haemolysis [None]
  - Pyrexia [None]
  - Blood creatinine increased [None]
  - Haemodialysis [None]
